FAERS Safety Report 19678777 (Version 1)
Quarter: 2021Q3

REPORT INFORMATION
  Report Type: Spontaneous
  Country: US (occurrence: US)
  Receive Date: 20210809
  Receipt Date: 20210809
  Transmission Date: 20211014
  Serious: No
  Sender: FDA-Public Use
  Company Number: None

PATIENT
  Age: 20 Year
  Sex: Male
  Weight: 63 kg

DRUGS (1)
  1. WELLBUTRIN SR [Suspect]
     Active Substance: BUPROPION HYDROCHLORIDE
     Dosage: ?          QUANTITY:2 CAPSULE(S);?
     Route: 048

REACTIONS (3)
  - Paraesthesia [None]
  - Cardiac disorder [None]
  - Raynaud^s phenomenon [None]

NARRATIVE: CASE EVENT DATE: 20210805
